FAERS Safety Report 21796832 (Version 1)
Quarter: 2022Q4

REPORT INFORMATION
  Report Type: Spontaneous
  Country: US (occurrence: US)
  Receive Date: 20221230
  Receipt Date: 20221230
  Transmission Date: 20230112
  Serious: No
  Sender: FDA-Public Use
  Company Number: US-ABBVIE-4249339

PATIENT
  Age: 67 Year
  Sex: Male

DRUGS (2)
  1. UPADACITINIB [Suspect]
     Active Substance: UPADACITINIB
     Indication: Alopecia universalis
     Route: 048
     Dates: start: 202203
  2. UPADACITINIB [Suspect]
     Active Substance: UPADACITINIB
     Indication: Alopecia universalis
     Route: 048
     Dates: start: 202102, end: 202106

REACTIONS (1)
  - Product use in unapproved indication [Unknown]
